FAERS Safety Report 5667575-6 (Version None)
Quarter: 2008Q1

REPORT INFORMATION
  Report Type: 
  Country: None (occurrence: None)
  Receive Date: 20080315
  Receipt Date: 20080128
  Transmission Date: 20080703
  Serious: No
  Sender: FDA-Public Use
  Company Number: US-ABBOTT-08P-163-0435469-00

PATIENT
  Sex: Male
  Weight: 66.034 kg

DRUGS (5)
  1. HUMIRA [Suspect]
     Indication: PSORIATIC ARTHROPATHY
     Route: 058
     Dates: start: 20060101, end: 20070201
  2. HUMIRA [Suspect]
  3. HUMIRA [Suspect]
     Dates: start: 20080115
  4. METHOTREXATE [Concomitant]
     Indication: PSORIATIC ARTHROPATHY
  5. LISINOPRIL [Concomitant]
     Indication: HYPERTENSION
     Dates: end: 20070201

REACTIONS (3)
  - LIP SWELLING [None]
  - SWOLLEN TONGUE [None]
  - THROAT TIGHTNESS [None]
